FAERS Safety Report 4966602-9 (Version None)
Quarter: 2006Q2

REPORT INFORMATION
  Report Type: 
  Country: None (occurrence: None)
  Receive Date: 20060407
  Receipt Date: 20060404
  Transmission Date: 20061013
  Serious: Yes (Hospitalization)
  Sender: FDA-Public Use
  Company Number: FR-AVENTIS-200611226FR

PATIENT
  Age: 79 Year
  Sex: Female
  Weight: 72 kg

DRUGS (5)
  1. LASILIX [Suspect]
     Route: 048
     Dates: start: 20051230, end: 20060222
  2. COVERSYL [Suspect]
     Route: 048
     Dates: end: 20060222
  3. PREVISCAN [Suspect]
     Route: 048
     Dates: end: 20060222
  4. NEXIUM [Concomitant]
     Route: 048
  5. DIFFU K [Concomitant]
     Dosage: DOSE UNIT: UNITS
     Route: 048
     Dates: end: 20060222

REACTIONS (10)
  - BLOOD SODIUM DECREASED [None]
  - CYANOSIS [None]
  - DEHYDRATION [None]
  - DRUG INTERACTION [None]
  - HYPERKALAEMIA [None]
  - INTERNATIONAL NORMALISED RATIO INCREASED [None]
  - OVERDOSE [None]
  - RENAL FAILURE [None]
  - RESPIRATORY RATE INCREASED [None]
  - WEIGHT DECREASED [None]
